FAERS Safety Report 20678661 (Version 1)
Quarter: 2022Q2

REPORT INFORMATION
  Report Type: Spontaneous
  Country: NL (occurrence: NL)
  Receive Date: 20220406
  Receipt Date: 20220406
  Transmission Date: 20220720
  Serious: Yes (Other)
  Sender: FDA-Public Use
  Company Number: None

PATIENT
  Age: 19 Year
  Sex: Female

DRUGS (2)
  1. BUPROPION [Suspect]
     Active Substance: BUPROPION
     Indication: Depression
     Dosage: 10 MILLIGRAM DAILY; 1 X DAILY 1 TABLET,BUPROPION TABLET MGA 150MG / BRAND NAME NOT SPECIFIED, UNIT D
     Dates: start: 20211028, end: 20211105
  2. ETHINYL ESTRADIOL\LEVONORGESTREL ACETATE [Concomitant]
     Active Substance: ETHINYL ESTRADIOL\LEVONORGESTREL ACETATE
     Dosage: TABLET, 50/125 UG,ETHINYLESTRADIOL/LEVONORGESTREL TABLET 50/125UG / MICROGYNON 50 TABLET COATED,THER

REACTIONS (1)
  - Epilepsy [Recovered/Resolved]

NARRATIVE: CASE EVENT DATE: 20211108
